FAERS Safety Report 8242966-8 (Version None)
Quarter: 2012Q1

REPORT INFORMATION
  Report Type: 
  Country: None (occurrence: None)
  Receive Date: 20120329
  Receipt Date: 20120322
  Transmission Date: 20120608
  Serious: Yes (Hospitalization, Other)
  Sender: FDA-Public Use
  Company Number: US-PFIZER INC-2012075580

PATIENT
  Sex: Female
  Weight: 96 kg

DRUGS (8)
  1. VITAMIN D [Concomitant]
     Indication: BONE DISORDER
     Dosage: UNK
  2. PRILOSEC [Concomitant]
     Indication: DYSPEPSIA
     Dosage: 20 MG, DAILY
  3. LOVAZA [Concomitant]
     Indication: DRY EYE
     Dosage: UNK
  4. PRISTIQ [Suspect]
     Indication: DEPRESSION
     Dosage: 50 MG, DAILY
     Route: 048
  5. LISINOPRIL [Concomitant]
     Indication: HYPERTENSION
     Dosage: 10 MG, DAILY
     Route: 048
  6. ACETYLSALICYLIC ACID [Concomitant]
     Indication: ANTICOAGULANT THERAPY
     Dosage: 81 MG, DAILY
  7. SYNTHROID [Concomitant]
     Indication: THYROID DISORDER
     Dosage: 0.075 MG, DAILY
  8. METFORMIN [Concomitant]
     Indication: DIABETES MELLITUS
     Dosage: 750 MG, DAILY
     Route: 048

REACTIONS (5)
  - GASTROINTESTINAL TRACT IRRITATION [None]
  - CHOLELITHIASIS [None]
  - BLADDER DISORDER [None]
  - FISTULA [None]
  - ANORECTAL DISORDER [None]
